FAERS Safety Report 15037396 (Version 1)
Quarter: 2018Q2

REPORT INFORMATION
  Report Type: Spontaneous
  Country: DE (occurrence: DE)
  Receive Date: 20180620
  Receipt Date: 20180620
  Transmission Date: 20180711
  Serious: Yes (Hospitalization)
  Sender: FDA-Public Use
  Company Number: DE-TEVA-2018-DE-909530

PATIENT
  Age: 19 Year
  Sex: Female

DRUGS (1)
  1. DOXYCYCLINE. [Suspect]
     Active Substance: DOXYCYCLINE
     Dosage: NK
     Route: 065

REACTIONS (5)
  - Nausea [Unknown]
  - Headache [Unknown]
  - Photophobia [Unknown]
  - Pain [Unknown]
  - Phonophobia [Unknown]
